FAERS Safety Report 12965761 (Version 4)
Quarter: 2017Q1

REPORT INFORMATION
  Report Type: Spontaneous
  Country: NO (occurrence: NO)
  Receive Date: 20161122
  Receipt Date: 20170203
  Transmission Date: 20170428
  Serious: Yes (Hospitalization, Other)
  Sender: FDA-Public Use
  Company Number: PHHY2016NO144597

PATIENT
  Age: 45 Year
  Sex: Male
  Weight: 92 kg

DRUGS (2)
  1. CO-DIOVAN [Suspect]
     Active Substance: HYDROCHLOROTHIAZIDE\VALSARTAN
     Indication: HYPERTENSION
     Dosage: 2 DF, QD (160/12.5)
     Route: 048
  2. CO-DIOVAN [Suspect]
     Active Substance: HYDROCHLOROTHIAZIDE\VALSARTAN
     Dosage: 1 DF, BID
     Route: 048

REACTIONS (17)
  - Tinnitus [Recovered/Resolved]
  - Cyanosis [Unknown]
  - Pruritus [Recovered/Resolved]
  - Upper airway obstruction [Recovered/Resolved]
  - Atopy [Recovered/Resolved]
  - Drug ineffective [Unknown]
  - Choking [Recovered/Resolved]
  - Urinary retention [Recovered/Resolved]
  - Hypoaesthesia [Recovered/Resolved]
  - Skin haemorrhage [Recovered/Resolved]
  - Swelling [Unknown]
  - Blood pressure increased [Recovering/Resolving]
  - Rash [Unknown]
  - Headache [Recovered/Resolved]
  - Vision blurred [Recovered/Resolved]
  - Cough [Unknown]
  - Oedema [Unknown]

NARRATIVE: CASE EVENT DATE: 20161006
